FAERS Safety Report 17059807 (Version 1)
Quarter: 2019Q4

REPORT INFORMATION
  Report Type: Spontaneous
  Country: US (occurrence: US)
  Receive Date: 20191121
  Receipt Date: 20191121
  Transmission Date: 20200122
  Serious: Yes (Other)
  Sender: FDA-Public Use
  Company Number: US-NOVOPROD-647357

PATIENT
  Age: 7 Year
  Sex: Male

DRUGS (3)
  1. TRESIBA [Concomitant]
     Active Substance: INSULIN DEGLUDEC
     Indication: TYPE 1 DIABETES MELLITUS
     Dosage: 4.5 UNITS
     Route: 058
     Dates: start: 2018
  2. NOVOLOG [Suspect]
     Active Substance: INSULIN ASPART
     Indication: TYPE 1 DIABETES MELLITUS
     Dosage: 2-5 UNITS SLIDING SCALE
     Route: 058
     Dates: start: 2016
  3. NOVOLOG [Suspect]
     Active Substance: INSULIN ASPART
     Dosage: 2-5 UNITS SLIDING SCALE
     Route: 058
     Dates: start: 2016

REACTIONS (4)
  - Blood glucose increased [Recovering/Resolving]
  - Product quality issue [Unknown]
  - Blood ketone body decreased [Recovered/Resolved]
  - Scarlet fever [Recovering/Resolving]

NARRATIVE: CASE EVENT DATE: 201902
